FAERS Safety Report 17514442 (Version 1)
Quarter: 2020Q1

REPORT INFORMATION
  Report Type: Spontaneous
  Country: US (occurrence: US)
  Receive Date: 20200309
  Receipt Date: 20200309
  Transmission Date: 20200409
  Serious: Yes (Other)
  Sender: FDA-Public Use
  Company Number: US-EMD SERONO-9149767

PATIENT
  Age: 40 Year
  Sex: Female

DRUGS (1)
  1. REBIF [Suspect]
     Active Substance: INTERFERON BETA-1A
     Indication: MULTIPLE SCLEROSIS
     Dates: start: 20171220

REACTIONS (3)
  - Impaired gastric emptying [Unknown]
  - Hepatic steatosis [Unknown]
  - Influenza like illness [Unknown]

NARRATIVE: CASE EVENT DATE: 201712
